FAERS Safety Report 14667031 (Version 1)
Quarter: 2018Q1

REPORT INFORMATION
  Report Type: Report from Study
  Country: US (occurrence: US)
  Receive Date: 20180322
  Receipt Date: 20180322
  Transmission Date: 20180509
  Serious: Yes (Other)
  Sender: FDA-Public Use
  Company Number: US-ROCHE-2091606

PATIENT

DRUGS (19)
  1. ALLOPURINOL. [Concomitant]
     Active Substance: ALLOPURINOL
     Indication: PROPHYLAXIS
     Route: 048
     Dates: start: 20140920, end: 20141223
  2. HUMULIN NOS [Concomitant]
     Active Substance: INSULIN HUMAN
     Indication: BLOOD GLUCOSE INCREASED
     Route: 058
     Dates: start: 20140925, end: 20140925
  3. LASIX [Concomitant]
     Active Substance: FUROSEMIDE
     Route: 048
     Dates: start: 20141028
  4. BENADRYL [Concomitant]
     Active Substance: DIPHENHYDRAMINE HYDROCHLORIDE
     Indication: CHEST DISCOMFORT
     Route: 042
     Dates: start: 20140924, end: 20140924
  5. ACYCLOVIR. [Concomitant]
     Active Substance: ACYCLOVIR
     Indication: ANTIVIRAL PROPHYLAXIS
     Dosage: SHINGLES PROPHYLAXIS
     Route: 048
     Dates: start: 20140923
  6. BENADRYL [Concomitant]
     Active Substance: DIPHENHYDRAMINE HYDROCHLORIDE
     Indication: FLUSHING
  7. OBINUTUZUMAB. [Suspect]
     Active Substance: OBINUTUZUMAB
     Indication: CHRONIC LYMPHOCYTIC LEUKAEMIA
     Dosage: CYCLE 1 DAY 1 (C1D1): 100 MG, C2D2: 900 MG, C1 D8 AND D15 1000 MG FOLLOWED BY 1000 MG ON CYCLES 2-6
     Route: 042
  8. SEPTRA DS [Concomitant]
     Active Substance: SULFAMETHOXAZOLE\TRIMETHOPRIM
     Indication: INFECTION PROPHYLAXIS
     Route: 048
     Dates: start: 20140925, end: 20141102
  9. HUMULIN NOS [Concomitant]
     Active Substance: INSULIN HUMAN
     Route: 058
     Dates: start: 20141217, end: 20141217
  10. PEPCID (UNITED STATES) [Concomitant]
     Dosage: FOR: TRANSFUSION FACIAL FLUSHING
     Route: 011
     Dates: start: 20140926, end: 20140926
  11. SEPTRA DS [Concomitant]
     Active Substance: SULFAMETHOXAZOLE\TRIMETHOPRIM
     Indication: INFECTION PROPHYLAXIS
  12. MEPRON (UNITED STATES) [Concomitant]
     Indication: INFECTION PROPHYLAXIS
     Dosage: FOR: SEPTRA REPLACEMENT
     Route: 048
     Dates: start: 20140211, end: 20150515
  13. KENOLOG GEL (UNK INGREDIENTS) [Concomitant]
     Indication: RASH
     Route: 061
     Dates: start: 20141004
  14. METHYLPREDNISOLONE. [Suspect]
     Active Substance: METHYLPREDNISOLONE
     Indication: CHRONIC LYMPHOCYTIC LEUKAEMIA
     Dosage: FROM DAYS 1-3 IN 28 DAYS CYCLE FOR 1-4 CYCLES
     Route: 042
  15. FLUCONAZOLE. [Concomitant]
     Active Substance: FLUCONAZOLE
     Dosage: FUNGAL PROPHYLAXIS
     Route: 048
     Dates: start: 20141001
  16. DEMEROL [Concomitant]
     Active Substance: MEPERIDINE HYDROCHLORIDE
     Dosage: FOR: INFUSION RELATED RIGORS
     Route: 042
     Dates: start: 20140923, end: 20140923
  17. HYDROCORTISONE. [Concomitant]
     Active Substance: HYDROCORTISONE
     Indication: RASH
     Route: 061
     Dates: start: 20141121
  18. BENADRYL [Concomitant]
     Active Substance: DIPHENHYDRAMINE HYDROCHLORIDE
     Indication: FLUSHING
     Dosage: CHEST PRESSURE DURING TRANSFUSION
     Route: 042
     Dates: start: 20140923, end: 20140923
  19. TYLENOL [Concomitant]
     Active Substance: ACETAMINOPHEN
     Route: 048
     Dates: start: 20140924, end: 20140924

REACTIONS (6)
  - Neutropenia [Recovered/Resolved]
  - Pleural effusion [Not Recovered/Not Resolved]
  - Hyperkalaemia [Recovered/Resolved]
  - Renal impairment [Not Recovered/Not Resolved]
  - Hypophosphataemia [Recovered/Resolved]
  - Thrombocytopenia [Recovered/Resolved]

NARRATIVE: CASE EVENT DATE: 20140924
